FAERS Safety Report 22959978 (Version 2)
Quarter: 2023Q4

REPORT INFORMATION
  Report Type: Report from Study
  Country: US (occurrence: US)
  Receive Date: 20230920
  Receipt Date: 20231025
  Transmission Date: 20240109
  Serious: Yes (Hospitalization, Other)
  Sender: FDA-Public Use
  Company Number: US-JAZZ PHARMACEUTICALS-2023-US-012121

PATIENT
  Sex: Female
  Weight: 12.5 kg

DRUGS (5)
  1. EPIDIOLEX [Suspect]
     Active Substance: CANNABIDIOL
     Indication: Epilepsy
     Dosage: 1.5 MILLILITER, BID
  2. VIGABATRIN [Concomitant]
     Active Substance: VIGABATRIN
     Indication: Product used for unknown indication
  3. KEPPRA [Concomitant]
     Active Substance: LEVETIRACETAM
     Indication: Product used for unknown indication
  4. VALPROIC ACID [Concomitant]
     Active Substance: VALPROIC ACID
     Indication: Product used for unknown indication
  5. BANZEL [Concomitant]
     Active Substance: RUFINAMIDE
     Indication: Product used for unknown indication

REACTIONS (2)
  - Respiratory failure [Unknown]
  - Medical device removal [Unknown]
